FAERS Safety Report 4699570-8 (Version None)
Quarter: 2005Q2

REPORT INFORMATION
  Report Type: 
  Country: None (occurrence: None)
  Receive Date: 20050622
  Receipt Date: 20050615
  Transmission Date: 20051028
  Serious: No
  Sender: FDA-Public Use
  Company Number: 11469

PATIENT
  Age: 67 Year
  Sex: Male

DRUGS (1)
  1. AMIODARONE [Suspect]
     Indication: ATRIAL FIBRILLATION
     Dosage: 300 MG ONCE, IV
     Route: 042
     Dates: start: 20050605, end: 20050605

REACTIONS (2)
  - ARTHRALGIA [None]
  - BACK PAIN [None]
